FAERS Safety Report 24698965 (Version 1)
Quarter: 2024Q4

REPORT INFORMATION
  Report Type: Spontaneous
  Country: US (occurrence: US)
  Receive Date: 20241205
  Receipt Date: 20241205
  Transmission Date: 20250114
  Serious: No
  Sender: ROCHE
  Company Number: US-ROCHE-10000147084

PATIENT
  Age: 39 Year
  Sex: Female

DRUGS (15)
  1. RITUXIMAB [Suspect]
     Active Substance: RITUXIMAB
     Indication: Mantle cell lymphoma
     Route: 065
  2. CYCLOPHOSPHAMIDE [Concomitant]
     Active Substance: CYCLOPHOSPHAMIDE
  3. DOXORUBICIN [Concomitant]
     Active Substance: DOXORUBICIN
  4. VINCRISTINE [Concomitant]
     Active Substance: VINCRISTINE
  5. METHOTREXATE [Concomitant]
     Active Substance: METHOTREXATE
  6. IFOSFAMIDE [Concomitant]
     Active Substance: IFOSFAMIDE
  7. THALIDOMIDE [Concomitant]
     Active Substance: THALIDOMIDE
  8. CYTARABINE [Concomitant]
     Active Substance: CYTARABINE
  9. ETOPOSIDE [Concomitant]
     Active Substance: ETOPOSIDE
  10. BENDAMUSTINE [Concomitant]
     Active Substance: BENDAMUSTINE
  11. FLUDARABINE [Concomitant]
     Active Substance: FLUDARABINE PHOSPHATE
  12. MITOXANTRONE [Concomitant]
     Active Substance: MITOXANTRONE HYDROCHLORIDE
  13. LENALIDOMIDE [Concomitant]
     Active Substance: LENALIDOMIDE
  14. BORTEZOMIB [Concomitant]
     Active Substance: BORTEZOMIB
  15. IBRUTINIB [Concomitant]
     Active Substance: IBRUTINIB

REACTIONS (5)
  - Cytomegalovirus infection [Unknown]
  - Aspergillus infection [Unknown]
  - Pneumocystis jirovecii pneumonia [Unknown]
  - Pneumocystis jirovecii pneumonia [Unknown]
  - Disease progression [Unknown]
